FAERS Safety Report 21252546 (Version 2)
Quarter: 2022Q3

REPORT INFORMATION
  Report Type: Report from Study
  Country: US (occurrence: US)
  Receive Date: 20220825
  Receipt Date: 20220906
  Transmission Date: 20221027
  Serious: Yes (Other)
  Sender: FDA-Public Use
  Company Number: US-MYLANLABS-2021M1027565

PATIENT
  Sex: Female
  Weight: 52.16 kg

DRUGS (3)
  1. GLATIRAMER ACETATE [Suspect]
     Active Substance: GLATIRAMER ACETATE
     Indication: Multiple sclerosis
     Dosage: 40 MILLIGRAM, 3XW
     Route: 058
  2. GLATIRAMER ACETATE [Suspect]
     Active Substance: GLATIRAMER ACETATE
     Indication: Relapsing-remitting multiple sclerosis
  3. DEVICE [Suspect]
     Active Substance: DEVICE
     Indication: Relapsing-remitting multiple sclerosis
     Route: 065

REACTIONS (13)
  - Abortion spontaneous [Recovered/Resolved]
  - Rhinorrhoea [Unknown]
  - Malaise [Unknown]
  - Pain [Unknown]
  - Injection site pain [Unknown]
  - Pyrexia [Unknown]
  - Arthralgia [Unknown]
  - Injection site bruising [Recovered/Resolved]
  - Cough [Unknown]
  - Nausea [Recovered/Resolved]
  - Wrong technique in product usage process [Unknown]
  - Device defective [Unknown]
  - Maternal exposure during pregnancy [Recovered/Resolved]
